FAERS Safety Report 6773362-8 (Version None)
Quarter: 2010Q2

REPORT INFORMATION
  Report Type: 
  Country: None (occurrence: None)
  Receive Date: 20100616
  Receipt Date: 20100611
  Transmission Date: 20101027
  Serious: Yes (Death, Other)
  Sender: FDA-Public Use
  Company Number: US-ABBOTT-10P-163-0651002-00

PATIENT
  Age: 71 Year
  Sex: Female

DRUGS (1)
  1. HUMIRA [Suspect]
     Indication: RHEUMATOID ARTHRITIS
     Dates: start: 20040707

REACTIONS (5)
  - CARDIO-RESPIRATORY ARREST [None]
  - FALL [None]
  - HODGKIN'S DISEASE [None]
  - MALAISE [None]
  - RESPIRATORY FAILURE [None]
